FAERS Safety Report 6597179 (Version 2)
Quarter: 2020Q3

REPORT INFORMATION
  Report Type: Report from Study
  Country: US (occurrence: US)
  Receive Date: 20080328
  Receipt Date: 20080408
  Transmission Date: 20201104
  Serious: Yes (Death)
  Sender: FDA-Public Use
  Company Number: US-ROCHE-554020

PATIENT
  Age: 83 Year
  Sex: Male

DRUGS (1)
  1. IBANDRONIC ACID. [Suspect]
     Active Substance: IBANDRONIC ACID
     Indication: PRODUCT USED FOR UNKNOWN INDICATION
     Route: 065
     Dates: end: 200710

REACTIONS (3)
  - Cardiac failure congestive [Fatal]
  - Diabetes mellitus [Fatal]
  - Renal disorder [Fatal]
